FAERS Safety Report 15231942 (Version 1)
Quarter: 2018Q3

REPORT INFORMATION
  Report Type: Spontaneous
  Country: US (occurrence: US)
  Receive Date: 20180802
  Receipt Date: 20180802
  Transmission Date: 20181010
  Serious: Yes (Hospitalization)
  Sender: FDA-Public Use
  Company Number: US-JNJFOC-20180800272

PATIENT
  Age: 82 Year
  Sex: Female
  Weight: 47 kg

DRUGS (6)
  1. TORSEMIDE. [Concomitant]
     Active Substance: TORSEMIDE
  2. ASPIRIN. [Concomitant]
     Active Substance: ASPIRIN
  3. IMBRUVICA [Suspect]
     Active Substance: IBRUTINIB
     Indication: CHRONIC LYMPHOCYTIC LEUKAEMIA
     Route: 048
     Dates: start: 20180410
  4. TRAMADOL. [Concomitant]
     Active Substance: TRAMADOL
  5. METOPROLOL. [Concomitant]
     Active Substance: METOPROLOL
  6. TIZANIDINE. [Concomitant]
     Active Substance: TIZANIDINE

REACTIONS (1)
  - Complication associated with device [Not Recovered/Not Resolved]

NARRATIVE: CASE EVENT DATE: 20180726
